FAERS Safety Report 17127153 (Version 1)
Quarter: 2019Q4

REPORT INFORMATION
  Report Type: Spontaneous
  Country: NL (occurrence: NL)
  Receive Date: 20191209
  Receipt Date: 20191209
  Transmission Date: 20200122
  Serious: Yes (Other)
  Sender: FDA-Public Use
  Company Number: NL-PFIZER INC-2019517689

PATIENT
  Sex: Female
  Weight: 55 kg

DRUGS (1)
  1. CHAMPIX [Suspect]
     Active Substance: VARENICLINE TARTRATE
     Indication: SMOKING CESSATION THERAPY
     Dosage: 1 DF, 1X/DAY
     Route: 050
     Dates: start: 20190821, end: 20190930

REACTIONS (2)
  - Abdominal pain [Unknown]
  - Hepatic enzyme increased [Recovered/Resolved with Sequelae]
